FAERS Safety Report 6340582-6 (Version None)
Quarter: 2009Q3

REPORT INFORMATION
  Report Type: 
  Country: None (occurrence: None)
  Receive Date: 20090904
  Receipt Date: 20090825
  Transmission Date: 20100115
  Serious: Yes (Other)
  Sender: FDA-Public Use
  Company Number: US-BAYER-200930985NA

PATIENT
  Age: 19 Year
  Sex: Female
  Weight: 91 kg

DRUGS (2)
  1. YAZ [Suspect]
     Indication: POLYCYSTIC OVARIES
  2. YASMIN [Suspect]
     Indication: POLYCYSTIC OVARIES

REACTIONS (5)
  - ANAPHYLACTIC REACTION [None]
  - COUGH [None]
  - DRUG HYPERSENSITIVITY [None]
  - PYREXIA [None]
  - THROMBOSIS [None]
